FAERS Safety Report 9601037 (Version 1)
Quarter: 2013Q4

REPORT INFORMATION
  Report Type: Spontaneous
  Country: US (occurrence: US)
  Receive Date: 20131004
  Receipt Date: 20131004
  Transmission Date: 20140711
  Serious: No
  Sender: FDA-Public Use
  Company Number: US-AMGEN-USASP2013038264

PATIENT
  Age: 47 Year
  Sex: Female
  Weight: 99.77 kg

DRUGS (6)
  1. ENBREL [Suspect]
     Indication: PRODUCT USED FOR UNKNOWN INDICATION
     Dosage: 50 MG, QWK
     Route: 058
  2. PREDNISONE [Concomitant]
     Dosage: 1 MG, UNK
  3. FOLIC ACID [Concomitant]
     Dosage: UNK
  4. LISINOPRIL [Concomitant]
     Dosage: 40 MG, UNK
  5. ATENOLOL [Concomitant]
     Dosage: 100 MG, UNK
  6. NEXIUM                             /01479302/ [Concomitant]
     Dosage: 20 MG, UNK, DR

REACTIONS (1)
  - Therapeutic response decreased [Unknown]
